FAERS Safety Report 17467023 (Version 1)
Quarter: 2020Q1

REPORT INFORMATION
  Report Type: Spontaneous
  Country: QA (occurrence: QA)
  Receive Date: 20200227
  Receipt Date: 20200227
  Transmission Date: 20200409
  Serious: Yes (Life-Threatening, Hospitalization, Other)
  Sender: FDA-Public Use
  Company Number: QA-STRIDES ARCOLAB LIMITED-2020SP001799

PATIENT
  Age: 65 Year
  Sex: Male

DRUGS (1)
  1. IBUPROFEN. [Suspect]
     Active Substance: IBUPROFEN
     Indication: ABDOMINAL PAIN
     Dosage: 10 DOSAGE FORM, 24 HOURS (CONSUMED 10 TABLETS, DAILY)
     Route: 048

REACTIONS (10)
  - Anaemia [Unknown]
  - Dizziness [Unknown]
  - Tachycardia [Unknown]
  - Haemodynamic instability [Unknown]
  - Helicobacter gastritis [Unknown]
  - Overdose [Unknown]
  - Melaena [Unknown]
  - Peptic ulcer [Unknown]
  - Gastric ulcer haemorrhage [Unknown]
  - Dyspnoea [Unknown]
